FAERS Safety Report 9154969 (Version 1)
Quarter: 2013Q1

REPORT INFORMATION
  Report Type: Spontaneous
  Country: US (occurrence: None)
  Receive Date: 20130205
  Receipt Date: 20130205
  Transmission Date: 20140127
  Serious: Yes (Other)
  Sender: FDA-Public Use
  Company Number: TPA2013A01101

PATIENT
  Age: 50 Year
  Sex: Female

DRUGS (4)
  1. DEXILANT (DEXLANSOPRAZOLE) [Suspect]
     Indication: EROSIVE OESOPHAGITIS
     Dosage: 30 MG, 1 IN 1 D, PER ORAL
     Route: 048
     Dates: start: 2009, end: 201112
  2. YEAST EXTRACT (UNSPECIFIED HERBAL) [Concomitant]
  3. Q10 COENZYME (UBIDECARENONE) [Concomitant]
  4. VITAMIN D (VITAMIN D NOS) [Concomitant]

REACTIONS (3)
  - Metaplasia [None]
  - Overdose [None]
  - Chemical burn of gastrointestinal tract [None]
